FAERS Safety Report 23619664 (Version 2)
Quarter: 2025Q1

REPORT INFORMATION
  Report Type: Other
  Country: AU (occurrence: AU)
  Receive Date: 20240312
  Receipt Date: 20250225
  Transmission Date: 20250409
  Serious: No
  Sender: TOLMAR
  Company Number: AU-TOLMAR, INC.-24AU046886

PATIENT
  Sex: Male

DRUGS (3)
  1. ELIGARD [Suspect]
     Active Substance: LEUPROLIDE ACETATE
     Indication: Prostate cancer
     Dosage: 22.5 MILLIGRAM, Q 3 MONTH
  2. ELIGARD [Suspect]
     Active Substance: LEUPROLIDE ACETATE
     Indication: Prostate cancer
  3. DAROLUTAMIDE [Suspect]
     Active Substance: DAROLUTAMIDE
     Indication: Product used for unknown indication

REACTIONS (3)
  - Hot flush [Recovering/Resolving]
  - Drug ineffective [Unknown]
  - Prostatic specific antigen increased [Not Recovered/Not Resolved]
